FAERS Safety Report 7002120-4 (Version None)
Quarter: 2010Q3

REPORT INFORMATION
  Report Type: 
  Country: None (occurrence: None)
  Receive Date: 20100920
  Receipt Date: 20100517
  Transmission Date: 20110219
  Serious: Yes (Disabling)
  Sender: FDA-Public Use
  Company Number: US-ASTRAZENECA-2007UW09043

PATIENT
  Age: 11855 Day
  Sex: Female

DRUGS (2)
  1. SEROQUEL [Suspect]
     Dosage: 200-300 MG AT NIGHT
     Route: 048
     Dates: start: 20000304
  2. ZOCOR [Concomitant]
     Route: 048
     Dates: start: 20030412

REACTIONS (2)
  - DIABETES MELLITUS [None]
  - TYPE 2 DIABETES MELLITUS [None]
